FAERS Safety Report 6410708-4 (Version None)
Quarter: 2009Q4

REPORT INFORMATION
  Report Type: 
  Country: None (occurrence: None)
  Receive Date: 20091015
  Receipt Date: 20091008
  Transmission Date: 20100525
  Serious: Yes (Hospitalization)
  Sender: FDA-Public Use
  Company Number: WAES 0909USA02428

PATIENT
  Age: 71 Year
  Sex: Female
  Weight: 66.6788 kg

DRUGS (12)
  1. DEXAMETHASONE [Suspect]
     Indication: MULTIPLE MYELOMA
     Dosage: 20 MG/ / PO
     Route: 048
     Dates: start: 20090605, end: 20090810
  2. VELCADE [Suspect]
     Indication: MULTIPLE MYELOMA
     Dosage: 1.2 MG/Q4W/IV
     Route: 042
     Dates: start: 20090605, end: 20090810
  3. CENTRUM SILVER [Concomitant]
  4. LOMOTIL [Concomitant]
  5. SYNTHROID [Concomitant]
  6. VALTREX [Concomitant]
  7. VICODIN [Concomitant]
  8. XALATAN [Concomitant]
  9. XANAX [Concomitant]
  10. ZOFRAN [Concomitant]
  11. ZOLOFT [Concomitant]
  12. TIZANIDINE HYDROCHLORIDE [Concomitant]

REACTIONS (4)
  - BACTERAEMIA [None]
  - BLOOD CULTURE POSITIVE [None]
  - HYPOPHAGIA [None]
  - URINARY TRACT INFECTION [None]
